FAERS Safety Report 15237027 (Version 2)
Quarter: 2018Q3

REPORT INFORMATION
  Report Type: Spontaneous
  Country: US (occurrence: US)
  Receive Date: 20180803
  Receipt Date: 20180831
  Transmission Date: 20181010
  Serious: No
  Sender: FDA-Public Use
  Company Number: US-PFIZER INC-2018308421

PATIENT
  Age: 39 Year
  Sex: Female

DRUGS (30)
  1. DICLOFENAC SODIUM ER [Concomitant]
     Active Substance: DICLOFENAC SODIUM
     Indication: PAIN IN EXTREMITY
     Dosage: UNK UNK, AS NEEDED (2?3 TIMES A DAY PRN)
  2. PRILOSEC [OMEPRAZOLE] [Concomitant]
     Dosage: 20.6 MG, 1X/DAY (BEFORE BREAKFAST )
  3. BAUSCH + LOMB MOISTURE EYES [Concomitant]
     Indication: DRY EYE
     Dosage: UNK, AS NEEDED (FOUR TIMES A DAY OR AS NEEDED)
  4. IMODIUM N [Concomitant]
     Indication: DIARRHOEA
     Dosage: UNK, AS NEEDED (RARELY USED)
  5. VITAMIN D3 [Concomitant]
     Active Substance: CHOLECALCIFEROL
     Dosage: 1000 IU, DAILY (ONE DAILY)
  6. B?COMPLEX + VITAMIN C [Concomitant]
     Dosage: 300 MG, DAILY
  7. ZINC. [Concomitant]
     Active Substance: ZINC
     Dosage: 30 MG, DAILY
  8. PREMARIN [Suspect]
     Active Substance: ESTROGENS, CONJUGATED
     Dosage: 0.3 MG, 6X/WEEK (0.3MG ONCE A DAY EXCEPT ON SUNDAY) (BED TIME)
     Dates: end: 201712
  9. FLUTICASONE PROPIONATE. [Concomitant]
     Active Substance: FLUTICASONE PROPIONATE
     Dosage: UNK, AS NEEDED (ONCE A DAY PRN)
  10. PEPTO?BISMOL [Concomitant]
     Active Substance: BISMUTH SUBSALICYLATE
     Indication: GASTROINTESTINAL DISORDER
     Dosage: UNK UNK, AS NEEDED (RARELY USED)
  11. PREMARIN [Suspect]
     Active Substance: ESTROGENS, CONJUGATED
     Indication: HOT FLUSH
     Dosage: 0.3 MG, UNK
     Dates: end: 20170716
  12. OPCON?A [Concomitant]
     Active Substance: NAPHAZOLINE HYDROCHLORIDE\PHENIRAMINE MALEATE
     Indication: EYE IRRITATION
     Dosage: UNK UNK, AS NEEDED
  13. FOLIC ACID. [Concomitant]
     Active Substance: FOLIC ACID
     Dosage: 400 UG, 1X/DAY
  14. ULTIMATE OMEGA [Concomitant]
     Dosage: 2560 MG, 1X/DAY (1280 MG TWO DAILY AT DINNER)
  15. TYLENOL EXTRA STRENGTH [Concomitant]
     Active Substance: ACETAMINOPHEN
     Indication: PAIN
     Dosage: 500 MG, AS NEEDED (1?2 TIMES A DAY PRN )
  16. SYNTHROID [Concomitant]
     Active Substance: LEVOTHYROXINE SODIUM
     Dosage: 50 UG, 1X/DAY (ONCE IN MORNING HOUR BEFORE BREAKFAST)
  17. SUDAFED [Concomitant]
     Active Substance: PSEUDOEPHEDRINE HYDROCHLORIDE
     Indication: DIZZINESS
     Dosage: UNK, AS NEEDED (10 MG OR 30 MG PRN POST NASAL DRIP)
  18. BIOFREEZE [MENTHOL] [Concomitant]
     Indication: PAIN
     Dosage: UNK UNK, AS NEEDED
  19. SALON [Concomitant]
     Indication: PAIN
     Dosage: UNK UNK, AS NEEDED
  20. PREMARIN [Suspect]
     Active Substance: ESTROGENS, CONJUGATED
     Indication: HYSTERECTOMY
     Dosage: 0.626 MG, CYCLIC (TAKEN EVERY DAY EXCEPT ON SUNDAY)
     Dates: start: 1975
  21. BEANO [Concomitant]
     Active Substance: ASPERGILLUS NIGER .ALPHA.-GALACTOSIDASE
     Indication: FLATULENCE
     Dosage: UNK UNK, AS NEEDED
  22. MINERAL ICE [Concomitant]
     Indication: PAIN
     Dosage: UNK UNK, AS NEEDED
  23. OXYBUTYNIN CHLORIDE. [Concomitant]
     Active Substance: OXYBUTYNIN CHLORIDE
     Dosage: 5 MG, AS NEEDED (CURRENTLY TAKING 1/2 TAB AM, AND HS AS NEEDED)
  24. CLINDAMYCIN. [Concomitant]
     Active Substance: CLINDAMYCIN
     Indication: PROPHYLAXIS
     Dosage: 600 MG, UNK
  25. ADVIL JUNIOR STRENGTH [Concomitant]
     Indication: PAIN
     Dosage: 100 MG, AS NEEDED (ONCE OR TWICE A DAY PRN )
  26. CLARITINE [Concomitant]
     Active Substance: LORATADINE
     Indication: UPPER-AIRWAY COUGH SYNDROME
     Dosage: AS NEEDED (ONE TABLET AT BREAKFAST PRN POSTNASAL DRIP)
  27. SUDAFED [Concomitant]
     Active Substance: PSEUDOEPHEDRINE HYDROCHLORIDE
     Indication: SINUS DISORDER
  28. SUDAFED [Concomitant]
     Active Substance: PSEUDOEPHEDRINE HYDROCHLORIDE
     Indication: UPPER-AIRWAY COUGH SYNDROME
  29. VITAMIN B12 [Concomitant]
     Active Substance: CYANOCOBALAMIN
     Dosage: 1000 UG, 1X/DAY (ONE DAILY AT DINNER)
  30. CALTRATE WITH VITAMIN D [Concomitant]
     Active Substance: CALCIUM CARBONATE\CHOLECALCIFEROL
     Dosage: 800 IU, 1X/DAY (ONE DAILY AT DINNER)

REACTIONS (5)
  - Product use issue [Unknown]
  - Breast tenderness [Recovered/Resolved]
  - Discomfort [Unknown]
  - Hot flush [Recovered/Resolved]
  - Condition aggravated [Recovered/Resolved]

NARRATIVE: CASE EVENT DATE: 1975
